FAERS Safety Report 6468509-7 (Version None)
Quarter: 2009Q4

REPORT INFORMATION
  Report Type: 
  Country: None (occurrence: None)
  Receive Date: 20091203
  Receipt Date: 20091125
  Transmission Date: 20100525
  Serious: Yes (Hospitalization)
  Sender: FDA-Public Use
  Company Number: FR-ASTRAZENECA-2009SE29079

PATIENT
  Age: 34 Year
  Sex: Female

DRUGS (4)
  1. ZESTRIL [Suspect]
     Route: 048
     Dates: end: 20091104
  2. DIGOXIN [Concomitant]
     Route: 048
  3. LASILIX [Concomitant]
     Route: 048
  4. SINTROM [Concomitant]
     Route: 048

REACTIONS (1)
  - PANCYTOPENIA [None]
